FAERS Safety Report 8049005-2 (Version None)
Quarter: 2012Q1

REPORT INFORMATION
  Report Type: 
  Country: None (occurrence: None)
  Receive Date: 20120117
  Receipt Date: 20120113
  Transmission Date: 20120608
  Serious: Yes (Life-Threatening, Hospitalization, Other)
  Sender: FDA-Public Use
  Company Number: JP-B.I. PHARMACEUTICALS,INC./RIDGEFIELD-2011-BP-23977NB

PATIENT
  Sex: Male
  Weight: 33 kg

DRUGS (6)
  1. LAXODATE [Concomitant]
     Indication: INTESTINAL OBSTRUCTION
     Route: 048
  2. DILTIAZEM HYDROCHLORIDE R [Concomitant]
     Dosage: 100 MG
     Route: 048
     Dates: end: 20110705
  3. FUROSEMIDE [Concomitant]
     Indication: CARDIAC FAILURE CHRONIC
     Dosage: 20 MG
     Route: 048
     Dates: start: 20110628
  4. PRADAXA [Suspect]
     Indication: ATRIAL FIBRILLATION
     Dosage: 220 MG
     Route: 048
     Dates: start: 20110629, end: 20110929
  5. LAXOBERON [Concomitant]
     Indication: INTESTINAL OBSTRUCTION
     Dosage: 5 MG
     Route: 048
     Dates: end: 20110705
  6. DILTIAZEM HCL [Concomitant]
     Dosage: 100 MG
     Route: 048
     Dates: start: 20110706, end: 20110930

REACTIONS (4)
  - MELAENA [None]
  - GASTRIC CANCER [None]
  - GASTRIC ULCER HAEMORRHAGE [None]
  - ANAEMIA [None]
